FAERS Safety Report 8460139-0 (Version None)
Quarter: 2012Q2

REPORT INFORMATION
  Report Type: 
  Country: None (occurrence: None)
  Receive Date: 20120622
  Receipt Date: 20120613
  Transmission Date: 20120825
  Serious: Yes (Hospitalization, Other)
  Sender: FDA-Public Use
  Company Number: FR-ASTRAZENECA-2011SE77280

PATIENT
  Age: 30 Year
  Sex: Female

DRUGS (20)
  1. QUETIAPINE FUMARATE [Suspect]
     Route: 048
     Dates: start: 20111105, end: 20111108
  2. QUETIAPINE FUMARATE [Suspect]
     Route: 048
     Dates: start: 20111108, end: 20111115
  3. QUETIAPINE FUMARATE [Suspect]
     Route: 048
     Dates: start: 20111115, end: 20111116
  4. TRIMEPRAZINE TARTRATE [Concomitant]
     Dates: start: 20111020
  5. ZYPREXA [Concomitant]
     Dates: start: 20110920, end: 20111004
  6. NORFLOXACIN [Concomitant]
     Dates: start: 20111018, end: 20111021
  7. ACETAMINOPHEN [Concomitant]
     Dates: start: 20110919
  8. DUPHALAC [Concomitant]
     Dates: start: 20111106
  9. QUETIAPINE FUMARATE [Suspect]
     Route: 048
     Dates: start: 20111104, end: 20111105
  10. QUETIAPINE FUMARATE [Suspect]
     Route: 048
     Dates: start: 20111122, end: 20111206
  11. QUETIAPINE FUMARATE [Suspect]
     Route: 048
     Dates: start: 20111206, end: 20111214
  12. QUETIAPINE FUMARATE [Suspect]
     Indication: MAJOR DEPRESSION
     Route: 048
     Dates: start: 20111020, end: 20111104
  13. TERCIAN [Suspect]
     Indication: BIPOLAR DISORDER
     Route: 048
     Dates: start: 20111116
  14. ABILIFY [Concomitant]
     Indication: BIPOLAR I DISORDER
  15. LOXAPINE HCL [Suspect]
     Indication: BIPOLAR DISORDER
     Dosage: DOSE DEPENDENT OF THE SEDATION
     Route: 048
     Dates: start: 20111118, end: 20111214
  16. RISPERDAL [Concomitant]
     Dates: start: 20110918, end: 20110921
  17. LAMICTAL [Concomitant]
     Route: 048
     Dates: start: 20110918
  18. STABLON [Concomitant]
     Dates: start: 20110918
  19. QUETIAPINE FUMARATE [Suspect]
     Route: 048
     Dates: start: 20111116, end: 20111122
  20. XANAX [Concomitant]
     Route: 048
     Dates: start: 20111011, end: 20111201

REACTIONS (1)
  - COLITIS ISCHAEMIC [None]
